FAERS Safety Report 8472722-7 (Version None)
Quarter: 2012Q2

REPORT INFORMATION
  Report Type: 
  Country: None (occurrence: None)
  Receive Date: 20120627
  Receipt Date: 20120627
  Transmission Date: 20120825
  Serious: Yes (Life-Threatening, Hospitalization, Other)
  Sender: FDA-Public Use
  Company Number: GB-PFIZER INC-2006RR-03958

PATIENT
  Age: 64 Year
  Sex: Female

DRUGS (8)
  1. VERAPAMIL [Suspect]
     Dosage: 80 MG, TID
     Route: 048
  2. DIGOXIN [Suspect]
     Indication: ATRIAL FIBRILLATION
     Dosage: 80 MG, UNK
     Route: 065
  3. WARFARIN [Concomitant]
     Dosage: UNK
  4. CO-AMILOFRUSE [Concomitant]
     Dosage: UNK
  5. FRUMIL [Concomitant]
     Dosage: UNK
  6. SOTALOL HCL [Suspect]
     Indication: ATRIAL FIBRILLATION
     Dosage: UNK
     Route: 048
  7. PERINDOPRIL [Concomitant]
     Dosage: UNK
  8. VERAPAMIL HCL [Suspect]
     Indication: ATRIAL FIBRILLATION
     Dosage: 80 MG, TID
     Route: 065

REACTIONS (23)
  - ABDOMINAL DISCOMFORT [None]
  - ANURIA [None]
  - GASTROINTESTINAL SOUNDS ABNORMAL [None]
  - ABDOMINAL TENDERNESS [None]
  - CARDIOMEGALY [None]
  - COUGH [None]
  - TOXICITY TO VARIOUS AGENTS [None]
  - HYPOTENSION [None]
  - RENAL IMPAIRMENT [None]
  - CARDIAC FAILURE [None]
  - DYSPNOEA [None]
  - ATRIAL FIBRILLATION [None]
  - LIVER FUNCTION TEST ABNORMAL [None]
  - LIVEDO RETICULARIS [None]
  - CARDIOACTIVE DRUG LEVEL DECREASED [None]
  - HEPATIC ENZYME INCREASED [None]
  - DEPRESSED LEVEL OF CONSCIOUSNESS [None]
  - PULSE ABSENT [None]
  - RENAL FAILURE [None]
  - BRADYCARDIA [None]
  - DRUG INTERACTION [None]
  - PIGMENTATION DISORDER [None]
  - METABOLIC ACIDOSIS [None]
